FAERS Safety Report 13641749 (Version 1)
Quarter: 2017Q2

REPORT INFORMATION
  Report Type: Spontaneous
  Country: SG (occurrence: SG)
  Receive Date: 20170612
  Receipt Date: 20170612
  Transmission Date: 20170830
  Serious: Yes (Death, Other)
  Sender: FDA-Public Use
  Company Number: SG-JNJFOC-20170605446

PATIENT
  Age: 7 Decade
  Sex: Male

DRUGS (1)
  1. KETOCONAZOLE. [Suspect]
     Active Substance: KETOCONAZOLE
     Indication: PRODUCT USED FOR UNKNOWN INDICATION
     Route: 065

REACTIONS (8)
  - Hepatotoxicity [Unknown]
  - Hepatic failure [Unknown]
  - Hepatitis [Unknown]
  - Pneumonia [Fatal]
  - Hepatitis cholestatic [Unknown]
  - Sepsis [Fatal]
  - Jaundice [Unknown]
  - Drug-induced liver injury [Fatal]
